FAERS Safety Report 19468647 (Version 1)
Quarter: 2021Q2

REPORT INFORMATION
  Report Type: Report from Study
  Country: US (occurrence: US)
  Receive Date: 20210628
  Receipt Date: 20210628
  Transmission Date: 20210717
  Serious: No
  Sender: FDA-Public Use
  Company Number: NVSC2021US138136

PATIENT
  Sex: Female

DRUGS (3)
  1. LUTATHERA [Suspect]
     Active Substance: LUTETIUM OXODOTREOTIDE LU-177
     Indication: ILL-DEFINED DISORDER
     Dosage: RECEIVED INJECTION DOSE ? 3
     Route: 042
     Dates: start: 202010, end: 202104
  2. LUTATHERA [Suspect]
     Active Substance: LUTETIUM OXODOTREOTIDE LU-177
     Indication: VOMITING
  3. LUTATHERA [Suspect]
     Active Substance: LUTETIUM OXODOTREOTIDE LU-177
     Indication: FORMICATION

REACTIONS (3)
  - Formication [Unknown]
  - Ill-defined disorder [Unknown]
  - Nausea [Unknown]
